FAERS Safety Report 23220405 (Version 1)
Quarter: 2023Q4

REPORT INFORMATION
  Report Type: Report from Study
  Country: IT (occurrence: IT)
  Receive Date: 20231123
  Receipt Date: 20231123
  Transmission Date: 20240110
  Serious: Yes (Hospitalization)
  Sender: FDA-Public Use
  Company Number: None

PATIENT
  Age: 48 Year
  Sex: Female

DRUGS (3)
  1. FLUVOXAMINE MALEATE [Suspect]
     Active Substance: FLUVOXAMINE MALEATE
     Indication: Product used for unknown indication
     Dosage: DOSE AND STRENGTH:15 DF
     Route: 048
     Dates: start: 20231026, end: 20231026
  2. RISPERIDONE [Suspect]
     Active Substance: RISPERIDONE
     Indication: Product used for unknown indication
     Dosage: DOSE AND STRENGTH:15DF
     Route: 048
     Dates: start: 20231026, end: 20231026
  3. LORAZEPAM [Concomitant]
     Active Substance: LORAZEPAM
     Indication: Anxiety
     Dosage: CONCOMITANT THERAPY 2.5 MILLIGRAMS/3 DAYS, UNIT DOSE:1 DF

REACTIONS (4)
  - Drug abuse [Unknown]
  - Abdominal pain upper [Unknown]
  - Diplopia [Unknown]
  - Nausea [Unknown]

NARRATIVE: CASE EVENT DATE: 20231026
